FAERS Safety Report 10502244 (Version 2)
Quarter: 2014Q4

REPORT INFORMATION
  Report Type: Spontaneous
  Country: IT (occurrence: IT)
  Receive Date: 20141007
  Receipt Date: 20141007
  Transmission Date: 20150528
  Serious: Yes (Death)
  Sender: FDA-Public Use
  Company Number: IT-CUBIST PHARMACEUTICALS, INC.-2014CBST001326

PATIENT

DRUGS (6)
  1. MEROPENEM. [Concomitant]
     Active Substance: MEROPENEM
     Indication: DEVICE RELATED INFECTION
  2. CUBICIN [Suspect]
     Active Substance: DAPTOMYCIN
     Indication: DEVICE RELATED INFECTION
  3. MEROPENEM. [Concomitant]
     Active Substance: MEROPENEM
     Indication: ENDOCARDITIS
  4. CUBICIN [Suspect]
     Active Substance: DAPTOMYCIN
     Indication: OFF LABEL USE
  5. MEROPENEM. [Concomitant]
     Active Substance: MEROPENEM
     Indication: ESCHERICHIA INFECTION
     Dosage: 1 G, TID
     Route: 065
  6. CUBICIN [Suspect]
     Active Substance: DAPTOMYCIN
     Indication: ENDOCARDITIS STAPHYLOCOCCAL
     Dosage: 500 MG, ONCE DAILY
     Route: 065

REACTIONS (2)
  - Sepsis syndrome [Fatal]
  - Pneumothorax [Fatal]
